FAERS Safety Report 25623341 (Version 1)
Quarter: 2025Q3

REPORT INFORMATION
  Report Type: Spontaneous
  Country: US (occurrence: US)
  Receive Date: 20250730
  Receipt Date: 20250730
  Transmission Date: 20251020
  Serious: Yes (Other)
  Sender: JOHNSON AND JOHNSON
  Company Number: US-JNJFOC-20250734992

PATIENT
  Age: 52 Year
  Sex: Female

DRUGS (4)
  1. INVEGA SUSTENNA [Suspect]
     Active Substance: PALIPERIDONE PALMITATE
     Indication: Major depression
     Dates: start: 20250710
  2. INVEGA SUSTENNA [Suspect]
     Active Substance: PALIPERIDONE PALMITATE
     Dates: start: 20250716
  3. INVEGA SUSTENNA [Suspect]
     Active Substance: PALIPERIDONE PALMITATE
  4. Saline Drops [Concomitant]
     Indication: Swelling

REACTIONS (2)
  - Angioedema [Unknown]
  - Off label use [Unknown]

NARRATIVE: CASE EVENT DATE: 20250701
